FAERS Safety Report 7289135-6 (Version None)
Quarter: 2011Q1

REPORT INFORMATION
  Report Type: 
  Country: None (occurrence: None)
  Receive Date: 20110211
  Receipt Date: 20110209
  Transmission Date: 20110831
  Serious: Yes (Hospitalization, Other)
  Sender: FDA-Public Use
  Company Number: US-PFIZER INC-2010178476

PATIENT
  Sex: Female

DRUGS (10)
  1. DILANTIN [Suspect]
     Indication: CONVULSION
     Dosage: 100 MG, 1X/DAY EACH NIGHT AT BED TIME
     Route: 048
     Dates: start: 20071218, end: 20071218
  2. ISONIAZID [Concomitant]
     Dosage: 300 MG, DAILY
     Route: 048
     Dates: start: 20081021, end: 20090831
  3. DILANTIN [Suspect]
     Dosage: 800 MG, 1X/DAY
     Route: 048
     Dates: start: 20080919, end: 20090628
  4. IBUPROFEN [Concomitant]
     Dosage: 800 MG 1 TABLET, EVERY 8 HOURS
     Route: 048
     Dates: start: 20090101, end: 20090831
  5. LISINOPRIL [Concomitant]
     Dosage: 20 MG, 1X/DAY
     Route: 048
     Dates: start: 20090302
  6. DILANTIN [Suspect]
     Dosage: 400 MG, 1X/DAY
     Route: 048
     Dates: start: 20071219, end: 20080208
  7. TOPROL-XL [Concomitant]
     Dosage: 50 MG, UNK
     Route: 048
     Dates: start: 20080208, end: 20090831
  8. DILANTIN [Suspect]
     Dosage: 1600 MG, 1X/DAY
     Route: 048
     Dates: start: 20080208, end: 20080919
  9. SIMVASTATIN [Concomitant]
     Dosage: 20 MG 1 TABLET EACH NIGHT AT BED TIME, 1X/DAY
     Route: 048
     Dates: start: 20090226
  10. DILANTIN [Suspect]
     Dosage: 400 MG, 1X/DAY
     Route: 048
     Dates: start: 20090628, end: 20090829

REACTIONS (1)
  - STEVENS-JOHNSON SYNDROME [None]
